FAERS Safety Report 6188508-2 (Version None)
Quarter: 2009Q2

REPORT INFORMATION
  Report Type: 
  Country: None (occurrence: None)
  Receive Date: 20090513
  Receipt Date: 20070822
  Transmission Date: 20091009
  Serious: Yes (Death)
  Sender: FDA-Public Use
  Company Number: DE-ALEXION-A200700047

PATIENT

DRUGS (12)
  1. SOLIRIS [Suspect]
     Indication: PAROXYSMAL NOCTURNAL HAEMOGLOBINURIA
     Dosage: 600 MG, SINGLE
     Route: 042
     Dates: start: 20070809, end: 20070809
  2. BELOC-ZOK [Concomitant]
     Dosage: 1 TABLET, QD
  3. ALDACTONE [Concomitant]
     Dosage: 50 MG, QD
  4. CREON [Concomitant]
     Dosage: 50000 IU, TID
  5. AVELOX [Concomitant]
     Dosage: 400 MG, QD
  6. LEVOTHYROXINE SODIUM [Concomitant]
     Dosage: 50 UG, QD
  7. SEVREDOL [Concomitant]
     Dosage: 10 MG, QID
  8. NOVALGIN                           /00039501/ [Concomitant]
     Dosage: 25 MG, UNK
  9. CIPROFLOXACIN HCL [Concomitant]
     Dosage: 250 MG, BID
  10. CLEXANE [Concomitant]
     Dosage: .4 UNK, QD
  11. PANTOZOL [Concomitant]
     Dosage: 40 MG, BID
  12. VERGENTAN [Concomitant]
     Dosage: 1AMP, TID

REACTIONS (2)
  - PULMONARY THROMBOSIS [None]
  - SEPTIC SHOCK [None]
